FAERS Safety Report 4434945-3 (Version None)
Quarter: 2004Q3

REPORT INFORMATION
  Report Type: 
  Country: None (occurrence: None)
  Receive Date: 20040726
  Receipt Date: 20040422
  Transmission Date: 20050211
  Serious: No
  Sender: FDA-Public Use
  Company Number: US_0404101945

PATIENT
  Age: 71 Year
  Sex: Female

DRUGS (2)
  1. EVISTA [Suspect]
     Indication: OSTEOPOROSIS
  2. FORTEO [Suspect]

REACTIONS (3)
  - ABDOMINAL DISCOMFORT [None]
  - ARTHRITIS [None]
  - PAIN IN EXTREMITY [None]
